FAERS Safety Report 11768475 (Version 1)
Quarter: 2015Q4

REPORT INFORMATION
  Report Type: Spontaneous
  Country: GB (occurrence: GB)
  Receive Date: 20151123
  Receipt Date: 20151123
  Transmission Date: 20160304
  Serious: Yes (Hospitalization)
  Sender: FDA-Public Use
  Company Number: GB-AUROBINDO-AUR-APL-2015-10310

PATIENT
  Age: 21 Year
  Weight: 40.4 kg

DRUGS (7)
  1. RIFAMPICIN [Concomitant]
     Active Substance: RIFAMPIN
     Indication: INFECTION
     Dosage: 300 MG, TWO TIMES A DAY
     Route: 048
     Dates: start: 20151016
  2. VANCOMYCIN [Suspect]
     Active Substance: VANCOMYCIN
     Indication: STAPHYLOCOCCAL BACTERAEMIA
     Dosage: 1 G, TWO TIMES A DAY
     Route: 042
     Dates: start: 20151016, end: 20151018
  3. LAMOTRIGINE. [Concomitant]
     Active Substance: LAMOTRIGINE
     Indication: EPILEPSY
     Dosage: 500 MG, TWO TIMES A DAY
     Route: 048
  4. VANCOMYCIN [Suspect]
     Active Substance: VANCOMYCIN
     Dosage: 1.5 G, TWO TIMES A DAY
     Route: 042
     Dates: start: 20151019, end: 20151021
  5. VANCOMYCIN [Suspect]
     Active Substance: VANCOMYCIN
     Dosage: 2 G, TWO TIMES A DAY
     Route: 042
     Dates: start: 20151022, end: 20151025
  6. PARACETAMOL [Concomitant]
     Active Substance: ACETAMINOPHEN
     Indication: PRODUCT USED FOR UNKNOWN INDICATION
     Dosage: 500 MG, FOUR TIMES/DAY
     Route: 048
  7. PIPERACILLIN AND TAZOBACTAM [Suspect]
     Active Substance: PIPERACILLIN SODIUM\TAZOBACTAM SODIUM
     Indication: ABSCESS
     Dosage: 4.5 G, 3 TIMES A DAY
     Route: 041
     Dates: start: 20151019, end: 20151025

REACTIONS (3)
  - Toxicity to various agents [Unknown]
  - Blood creatinine increased [Unknown]
  - Acute kidney injury [Recovering/Resolving]

NARRATIVE: CASE EVENT DATE: 20151025
